FAERS Safety Report 23113541 (Version 1)
Quarter: 2023Q4

REPORT INFORMATION
  Report Type: Spontaneous
  Country: CN (occurrence: CN)
  Receive Date: 20231027
  Receipt Date: 20231027
  Transmission Date: 20240110
  Serious: Yes (Other)
  Sender: FDA-Public Use
  Company Number: CN-002147023-NVSC2023CN227358

PATIENT
  Age: 77 Year
  Sex: Male
  Weight: 50 kg

DRUGS (12)
  1. SACUBITRIL\VALSARTAN [Suspect]
     Active Substance: SACUBITRIL\VALSARTAN
     Indication: Hypertension
     Dosage: 100 MG, BID
     Route: 048
     Dates: start: 20230825, end: 20231010
  2. SACUBITRIL\VALSARTAN [Suspect]
     Active Substance: SACUBITRIL\VALSARTAN
     Indication: Cardiac failure
  3. SACUBITRIL\VALSARTAN [Suspect]
     Active Substance: SACUBITRIL\VALSARTAN
     Indication: Arteriosclerosis coronary artery
  4. CLOPIDOGREL BISULFATE [Suspect]
     Active Substance: CLOPIDOGREL BISULFATE
     Indication: Antiplatelet therapy
     Dosage: 75 MG, QD
     Route: 048
     Dates: start: 20230825, end: 20231010
  5. CLOPIDOGREL BISULFATE [Suspect]
     Active Substance: CLOPIDOGREL BISULFATE
     Indication: Arteriosclerosis coronary artery
     Dosage: UNK (ONE WEEK LATER)
     Route: 065
  6. ATORVASTATIN CALCIUM [Suspect]
     Active Substance: ATORVASTATIN CALCIUM
     Indication: Arteriosclerosis coronary artery
     Dosage: 10 MG, QD
     Route: 048
     Dates: start: 20230825, end: 20231010
  7. ALUMINUM [Suspect]
     Active Substance: ALUMINUM
     Indication: Arteriosclerosis coronary artery
     Dosage: UNK UNK, QD (124 MG OF ALUMINIUM, MAGNESIUM AND ASPIRIN)
     Route: 048
     Dates: start: 20230825, end: 20231010
  8. ALUMINUM [Suspect]
     Active Substance: ALUMINUM
     Indication: Antiplatelet therapy
  9. MAGNESIUM [Suspect]
     Active Substance: MAGNESIUM
     Indication: Arteriosclerosis coronary artery
     Dosage: UNK UNK, QD (124 MG OF ALUMINIUM, MAGNESIUM AND ASPIRIN)
     Route: 048
     Dates: start: 20230825, end: 20231010
  10. MAGNESIUM [Suspect]
     Active Substance: MAGNESIUM
     Indication: Antiplatelet therapy
  11. ASPIRIN [Suspect]
     Active Substance: ASPIRIN
     Indication: Arteriosclerosis coronary artery
     Dosage: UNK UNK, QD (124 MG OF ALUMINIUM, MAGNESIUM AND ASPIRIN)
     Route: 048
     Dates: start: 20230825, end: 20231010
  12. ASPIRIN [Suspect]
     Active Substance: ASPIRIN
     Indication: Antiplatelet therapy

REACTIONS (2)
  - Haematochezia [Recovered/Resolved]
  - Gingival bleeding [Recovered/Resolved]

NARRATIVE: CASE EVENT DATE: 20231009
